FAERS Safety Report 18338358 (Version 1)
Quarter: 2020Q4

REPORT INFORMATION
  Report Type: Spontaneous
  Country: CN (occurrence: CN)
  Receive Date: 20201002
  Receipt Date: 20201002
  Transmission Date: 20210113
  Serious: Yes (Other)
  Sender: FDA-Public Use
  Company Number: CN-GLAXOSMITHKLINE-CN2020APC193301

PATIENT
  Age: 34 Year
  Sex: Female

DRUGS (2)
  1. MUPIROCIN. [Suspect]
     Active Substance: MUPIROCIN
     Indication: SWELLING
  2. MUPIROCIN. [Suspect]
     Active Substance: MUPIROCIN
     Indication: BACTERIAL INFECTION
     Dosage: 0.2 G, TID
     Route: 061
     Dates: start: 20200922, end: 20200922

REACTIONS (9)
  - Condition aggravated [Recovering/Resolving]
  - Burning sensation [Recovering/Resolving]
  - Eyelid function disorder [Recovering/Resolving]
  - Skin irritation [Recovering/Resolving]
  - Pruritus [Recovering/Resolving]
  - Periorbital swelling [Recovering/Resolving]
  - Erythema [Recovering/Resolving]
  - Swelling face [Recovering/Resolving]
  - Eye irritation [Recovering/Resolving]

NARRATIVE: CASE EVENT DATE: 20200922
